FAERS Safety Report 17770282 (Version 2)
Quarter: 2020Q4

REPORT INFORMATION
  Report Type: Report from Study
  Country: AU (occurrence: AU)
  Receive Date: 20200512
  Receipt Date: 20201111
  Transmission Date: 20210113
  Serious: Yes (Hospitalization, Other)
  Sender: FDA-Public Use
  Company Number: AU-TOLMAR, INC.-20AU020390

PATIENT
  Sex: Male

DRUGS (3)
  1. ELIGARD [Suspect]
     Active Substance: LEUPROLIDE ACETATE
     Indication: PROSTATE CANCER
     Dosage: 30 MG, Q 4 MONTH
     Route: 058
     Dates: start: 20201103
  2. ELIGARD [Suspect]
     Active Substance: LEUPROLIDE ACETATE
     Indication: PROSTATE CANCER
     Dosage: 7.5 MG, Q 1 MONTH
     Route: 058
  3. ELIGARD [Suspect]
     Active Substance: LEUPROLIDE ACETATE
     Indication: PROSTATE CANCER
     Dosage: 45 MG
     Route: 065
     Dates: start: 20200504, end: 20201103

REACTIONS (12)
  - Loss of libido [Unknown]
  - Fatigue [Unknown]
  - Lethargy [Not Recovered/Not Resolved]
  - Gait disturbance [Unknown]
  - Exercise tolerance decreased [Recovering/Resolving]
  - Cardiac failure [Unknown]
  - Pneumothorax [Unknown]
  - Weight decreased [Unknown]
  - Dyspnoea [Unknown]
  - Oedema peripheral [Recovering/Resolving]
  - Emphysema [Unknown]
  - Hot flush [Unknown]
